FAERS Safety Report 7534998-X (Version None)
Quarter: 2011Q2

REPORT INFORMATION
  Report Type: 
  Country: None (occurrence: None)
  Receive Date: 20110609
  Receipt Date: 20110602
  Transmission Date: 20111010
  Serious: No
  Sender: FDA-Public Use
  Company Number: US-BIOGENIDEC-2010BI026992

PATIENT
  Age: 56 Year
  Sex: Female

DRUGS (1)
  1. TYSABRI [Suspect]
     Indication: MULTIPLE SCLEROSIS
     Route: 042
     Dates: start: 20090511, end: 20110413

REACTIONS (5)
  - MULTIPLE SCLEROSIS [None]
  - ASTHENIA [None]
  - MUSCLE TIGHTNESS [None]
  - OPTIC NEURITIS [None]
  - FATIGUE [None]
